FAERS Safety Report 7756869-6 (Version None)
Quarter: 2011Q3

REPORT INFORMATION
  Report Type: 
  Country: None (occurrence: None)
  Receive Date: 20110916
  Receipt Date: 20110907
  Transmission Date: 20111222
  Serious: Yes (Hospitalization)
  Sender: FDA-Public Use
  Company Number: US-BAYER-201034832NA

PATIENT
  Age: 35 Year
  Sex: Female
  Weight: 126.98 kg

DRUGS (10)
  1. YASMIN [Suspect]
     Route: 048
  2. SERTRALINE HYDROCHLORIDE [Concomitant]
  3. ACIPHEX [Concomitant]
  4. LUNESTA [Concomitant]
  5. AZITHROMYCIN [Concomitant]
  6. DROSPIRENONE AND ETHINYL ESTRADIOL [Suspect]
     Dosage: UNK
  7. LASIX [Concomitant]
  8. KETOROLAC TROMETHAMINE [Concomitant]
  9. YAZ [Suspect]
     Route: 048
  10. LEXAPRO [Concomitant]

REACTIONS (2)
  - PULMONARY EMBOLISM [None]
  - INJURY [None]
